FAERS Safety Report 6615264-3 (Version None)
Quarter: 2010Q1

REPORT INFORMATION
  Report Type: 
  Country: None (occurrence: None)
  Receive Date: 20100305
  Receipt Date: 20100224
  Transmission Date: 20100710
  Serious: Yes (Other)
  Sender: FDA-Public Use
  Company Number: PHHY2010GB12010

PATIENT
  Age: 65 Year
  Sex: Male

DRUGS (1)
  1. METFORMIN, VILDAGLIPTIN [Suspect]
     Dosage: UNK
     Dates: start: 20081101

REACTIONS (1)
  - GLYCOSYLATED HAEMOGLOBIN INCREASED [None]
